FAERS Safety Report 7531775-0 (Version None)
Quarter: 2011Q2

REPORT INFORMATION
  Report Type: 
  Country: None (occurrence: None)
  Receive Date: 20110601
  Receipt Date: 20110515
  Transmission Date: 20111010
  Serious: Yes (Other)
  Sender: FDA-Public Use
  Company Number: GER/GER/11/0018335

PATIENT
  Sex: Female

DRUGS (1)
  1. VENLAFAXINE [Suspect]
     Indication: PRODUCT USED FOR UNKNOWN INDICATION
     Dosage: 18,75 MG, 1 IN 1 D, ORAL
     Route: 048

REACTIONS (12)
  - EUPHORIC MOOD [None]
  - PANIC ATTACK [None]
  - HOT FLUSH [None]
  - DIARRHOEA [None]
  - HYPERHIDROSIS [None]
  - ILLUSION [None]
  - NAUSEA [None]
  - PALPITATIONS [None]
  - DIZZINESS [None]
  - MORBID THOUGHTS [None]
  - SENSORY DISTURBANCE [None]
  - ANXIETY [None]
